FAERS Safety Report 5372849-2 (Version None)
Quarter: 2007Q2

REPORT INFORMATION
  Report Type: 
  Country: None (occurrence: None)
  Receive Date: 20070531
  Receipt Date: 20070321
  Transmission Date: 20071010
  Serious: Yes (Life-Threatening, Hospitalization, Other)
  Sender: FDA-Public Use
  Company Number: WSDF_00624

PATIENT
  Age: 19 Year
  Sex: Female
  Weight: 71 kg

DRUGS (7)
  1. WINRHO SDF [Suspect]
     Indication: IDIOPATHIC THROMBOCYTOPENIC PURPURA
     Dosage: 5300 MCG ONCE IV
     Route: 042
     Dates: start: 20070305, end: 20070305
  2. WINRHO SDF [Suspect]
     Indication: IDIOPATHIC THROMBOCYTOPENIC PURPURA
     Dates: start: 20070305, end: 20070305
  3. WINRHO SDF [Suspect]
     Indication: IDIOPATHIC THROMBOCYTOPENIC PURPURA
     Dates: start: 20070305, end: 20070305
  4. SEASONALE [Concomitant]
  5. PRILOSEC [Concomitant]
  6. BENADRYL [Concomitant]
  7. HYDROCORTISONE [Concomitant]

REACTIONS (1)
  - ANAPHYLACTOID REACTION [None]
